FAERS Safety Report 26062971 (Version 1)
Quarter: 2025Q4

REPORT INFORMATION
  Report Type: Spontaneous
  Country: IR (occurrence: IR)
  Receive Date: 20251119
  Receipt Date: 20251119
  Transmission Date: 20260117
  Serious: Yes (Hospitalization, Other)
  Sender: STRIDES
  Company Number: IR-STRIDES ARCOLAB LIMITED-2025SP014377

PATIENT
  Age: 31 Year
  Sex: Male

DRUGS (1)
  1. TRAMADOL [Suspect]
     Active Substance: TRAMADOL
     Indication: Premature ejaculation
     Dosage: 3-4 PILLS; INCREASED DAILY CONSUMPTION
     Route: 065

REACTIONS (3)
  - Mania [Recovered/Resolved]
  - Intentional product misuse [Recovered/Resolved]
  - Drug effective for unapproved indication [Unknown]
